FAERS Safety Report 9378422 (Version 1)
Quarter: 2013Q3

REPORT INFORMATION
  Report Type: Spontaneous
  Country: GB (occurrence: GB)
  Receive Date: 20130701
  Receipt Date: 20130701
  Transmission Date: 20140515
  Serious: Yes (Hospitalization, Other)
  Sender: FDA-Public Use
  Company Number: GB-GILEAD-2012-0060539

PATIENT
  Age: 34 Year
  Sex: Female

DRUGS (7)
  1. VIREAD [Suspect]
     Indication: ANTIVIRAL TREATMENT
     Dosage: 300 MG, QD
     Dates: start: 20100610
  2. ZIDOVUDINE [Suspect]
     Indication: ANTIRETROVIRAL THERAPY
     Dosage: 600 MG, QD
     Route: 048
     Dates: start: 20090101, end: 20100610
  3. ZIDOVUDINE [Suspect]
     Dosage: 800 MG, QD
     Route: 048
     Dates: start: 20100610
  4. ISENTRESS [Suspect]
     Indication: ANTIRETROVIRAL THERAPY
     Dosage: 800 MG, QD
     Route: 048
     Dates: start: 20100610
  5. NEVIRAPINE [Suspect]
     Indication: ANTIRETROVIRAL THERAPY
     Dosage: 400 MG, QD
     Dates: start: 20090101, end: 20100610
  6. LAMIVUDINE [Suspect]
     Indication: ANTIRETROVIRAL THERAPY
     Dosage: 300 MG, QD
     Route: 048
     Dates: start: 20090101, end: 20100610
  7. KALETRA [Suspect]
     Indication: ANTIRETROVIRAL THERAPY
     Dosage: UNK
     Route: 048
     Dates: start: 20100610

REACTIONS (5)
  - Caesarean section [Unknown]
  - Hepatocellular injury [Unknown]
  - Alanine aminotransferase increased [Unknown]
  - Aspartate aminotransferase increased [Unknown]
  - Exposure during pregnancy [Recovered/Resolved]
